FAERS Safety Report 14188723 (Version 1)
Quarter: 2017Q4

REPORT INFORMATION
  Report Type: Spontaneous
  Country: US (occurrence: US)
  Receive Date: 20171114
  Receipt Date: 20171114
  Transmission Date: 20180321
  Serious: No
  Sender: FDA-Public Use
  Company Number: US-AMGEN-USASP2017124645

PATIENT
  Age: 58 Year
  Sex: Male
  Weight: 66.5 kg

DRUGS (7)
  1. PARSABIV [Suspect]
     Active Substance: ETELCALCETIDE HYDROCHLORIDE
     Dosage: 12.5 MG, 3 TIMES/WK
     Route: 042
     Dates: start: 20170710, end: 20170714
  2. PARSABIV [Suspect]
     Active Substance: ETELCALCETIDE HYDROCHLORIDE
     Indication: HYPERPARATHYROIDISM SECONDARY
     Dosage: 2.5 MG, Q3WK
     Route: 042
     Dates: start: 20170501
  3. PARSABIV [Suspect]
     Active Substance: ETELCALCETIDE HYDROCHLORIDE
     Dosage: 5 MG, 3 TIMES/WK
     Route: 042
     Dates: start: 20170519, end: 20170614
  4. PARSABIV [Suspect]
     Active Substance: ETELCALCETIDE HYDROCHLORIDE
     Dosage: 10 MG, 3 TIMES/WK
     Route: 042
     Dates: start: 20170614, end: 20170707
  5. PARSABIV [Suspect]
     Active Substance: ETELCALCETIDE HYDROCHLORIDE
     Dosage: 17.5 MG, 3 TIMES/WK
     Route: 042
     Dates: start: 20170728, end: 20170809
  6. PARSABIV [Suspect]
     Active Substance: ETELCALCETIDE HYDROCHLORIDE
     Dosage: 20 MG, 3 TIMES/WK
     Route: 042
     Dates: start: 20170811, end: 20170814
  7. PARSABIV [Suspect]
     Active Substance: ETELCALCETIDE HYDROCHLORIDE
     Dosage: 15 MG, 3 TIMES/WK
     Route: 042
     Dates: start: 20170717, end: 20170726

REACTIONS (4)
  - Nausea [Recovered/Resolved]
  - Overdose [Unknown]
  - Dizziness [Recovered/Resolved]
  - Underdose [Unknown]

NARRATIVE: CASE EVENT DATE: 20170501
